FAERS Safety Report 4377285-3 (Version None)
Quarter: 2004Q2

REPORT INFORMATION
  Report Type: 
  Country: None (occurrence: None)
  Receive Date: 20040609
  Receipt Date: 20040305
  Transmission Date: 20050107
  Serious: No
  Sender: FDA-Public Use
  Company Number: 2004202588US

PATIENT
  Age: 43 Year
  Sex: Male

DRUGS (4)
  1. BEXTRA [Suspect]
     Indication: SCIATICA
     Dosage: 20 MG,
  2. AMBIEN [Concomitant]
  3. MIRTAZAPINE [Concomitant]
  4. PHENYTOIN [Concomitant]

REACTIONS (1)
  - ABNORMAL BEHAVIOUR [None]
